FAERS Safety Report 16775222 (Version 3)
Quarter: 2019Q3

REPORT INFORMATION
  Report Type: Spontaneous
  Country: US (occurrence: US)
  Receive Date: 20190905
  Receipt Date: 20190913
  Transmission Date: 20191005
  Serious: Yes (Hospitalization, Other)
  Sender: FDA-Public Use
  Company Number: US-DRREDDYS-USA/USA/19/0113805

PATIENT
  Age: 12 Year
  Sex: Male
  Weight: 43 kg

DRUGS (7)
  1. FENTANYL CITRATE. [Suspect]
     Active Substance: FENTANYL CITRATE
     Indication: PROCEDURAL PAIN
     Dosage: BOLUS DOSES 1 MCG/KG/DOSE PRN, MAXIMUM DOSE
     Route: 040
  2. DEXMEDETOMIDINE. [Concomitant]
     Active Substance: DEXMEDETOMIDINE
     Indication: SEDATION
     Dosage: FROM 5 D PREOPERATIVELY POD 34 AT A MAX DOSE 1.5 MCG/KG/H THAT WAS TURNED FROM 0.2 TO OFF 3 H PRIOR
  3. MORPHINE [Suspect]
     Active Substance: MORPHINE
     Indication: PROCEDURAL PAIN
     Dosage: MORPHINE 2 MG/DOSE Q2H AS REQUIRED
  4. METHADONE [Suspect]
     Active Substance: METHADONE HYDROCHLORIDE
     Indication: PROCEDURAL PAIN
     Dosage: POD 19 TO 27
  5. HYDROMORPHONE [Suspect]
     Active Substance: HYDROMORPHONE
     Dosage: POD 2 TO 40, 0.35 MG/DOSE PRN
  6. HYDROMORPHONE [Suspect]
     Active Substance: HYDROMORPHONE
     Indication: POSTOPERATIVE ANALGESIA
     Dosage: POD 2 TO 40, MAX DOSE 0.3 MG BASAL
  7. FENTANYL CITRATE. [Suspect]
     Active Substance: FENTANYL CITRATE
     Dosage: MAX DOSE 4 MCG/KG/H, POD 0 TO 2, FENTANYL BOLUS DOSES 1 MCG/KG/DOSE AS REQUIRED, IV
     Route: 042

REACTIONS (2)
  - Abdominal compartment syndrome [Recovered/Resolved]
  - Postoperative ileus [Recovered/Resolved]
